FAERS Safety Report 10215293 (Version 2)
Quarter: 2014Q2

REPORT INFORMATION
  Report Type: Report from Study
  Country: US (occurrence: US)
  Receive Date: 20140603
  Receipt Date: 20140616
  Transmission Date: 20141212
  Serious: Yes (Other)
  Sender: FDA-Public Use
  Company Number: US-CELGENEUS-163-21880-14054564

PATIENT
  Age: 81 Year
  Sex: Male
  Weight: 97.7 kg

DRUGS (1)
  1. REVLIMID [Suspect]
     Indication: PLASMA CELL MYELOMA
     Dosage: 10 MILLIGRAM
     Route: 048

REACTIONS (3)
  - Extradural neoplasm [Not Recovered/Not Resolved]
  - Bradycardia [Unknown]
  - Asthenia [Unknown]
